FAERS Safety Report 6370876-X (Version None)
Quarter: 2009Q3

REPORT INFORMATION
  Report Type: 
  Country: None (occurrence: None)
  Receive Date: 20090923
  Receipt Date: 20071126
  Transmission Date: 20100115
  Serious: Yes (Hospitalization, Other)
  Sender: FDA-Public Use
  Company Number: US-ASTRAZENECA-2006UW23005

PATIENT
  Age: 20989 Day
  Sex: Male
  Weight: 70.3 kg

DRUGS (18)
  1. SEROQUEL [Suspect]
     Indication: DEPRESSION
     Route: 048
     Dates: start: 20020101, end: 20040101
  2. SEROQUEL [Suspect]
     Indication: SLEEP DISORDER
     Route: 048
     Dates: start: 20020101, end: 20040101
  3. SEROQUEL [Suspect]
     Indication: INSOMNIA
     Route: 048
     Dates: start: 20020101, end: 20040101
  4. SEROQUEL [Suspect]
     Route: 048
     Dates: start: 20030312
  5. SEROQUEL [Suspect]
     Route: 048
     Dates: start: 20030312
  6. SEROQUEL [Suspect]
     Route: 048
     Dates: start: 20030312
  7. DILANTIN [Concomitant]
     Dates: start: 20040528
  8. EFFEXOR XR [Concomitant]
     Route: 048
     Dates: start: 20030312
  9. PROZAC [Concomitant]
     Route: 048
     Dates: start: 20030312
  10. HYDROXYZINE [Concomitant]
     Indication: ANXIETY
     Dates: start: 20031119
  11. REMERON [Concomitant]
     Dates: start: 20030204, end: 20030312
  12. NOVOLIN R [Concomitant]
     Indication: DIABETES MELLITUS
     Dates: start: 20070101
  13. CARDENE [Concomitant]
     Route: 048
     Dates: start: 20070101
  14. ACTOS [Concomitant]
     Dates: start: 20070101
  15. ATIVAN [Concomitant]
     Indication: ANXIETY
     Dates: start: 20041023
  16. TOPOROL XL [Concomitant]
     Dates: start: 20041023
  17. HALDOL [Concomitant]
     Dates: start: 20070101
  18. GEODON [Concomitant]
     Dates: start: 20070101

REACTIONS (3)
  - DIABETES MELLITUS [None]
  - PANCREATITIS [None]
  - PANCREATITIS ACUTE [None]
